FAERS Safety Report 10044548 (Version 1)
Quarter: 2014Q1

REPORT INFORMATION
  Report Type: Spontaneous
  Country: US (occurrence: None)
  Receive Date: 20140306
  Receipt Date: 20140306
  Transmission Date: 20141002
  Serious: Yes (Other)
  Sender: FDA-Public Use
  Company Number: 163-21880-13070508

PATIENT
  Age: 86 Year
  Sex: Female
  Weight: 58.06 kg

DRUGS (13)
  1. REVLIMID (LENALIDOMIDE) (10 MILLIGRAM, CAPSULES) [Suspect]
     Indication: PLASMA CELL MYELOMA
     Dosage: 10MG, 21 IN 28 D, PO
     Route: 048
     Dates: start: 20130301, end: 20130507
  2. SIMVASTATIN (SIMVASTATIN) [Concomitant]
  3. AMLODIPINE (AMLODIPINE) [Concomitant]
  4. SYNTHROID (LEVOTHYROXINE SODIUM) [Concomitant]
  5. LISINOPRIL (LISINOPRIL) [Concomitant]
  6. ALBUTEROL (SALBUTAMOL) [Concomitant]
  7. APRESOLINE (HYDRALAZINE HYDROCHLORIDE) [Concomitant]
  8. METOPROLOL (METOPROLOL) [Concomitant]
  9. FERROUS SULFATE (FERROUS SULFATE) [Concomitant]
  10. PRILOSEC (OMEPRAZOLE) [Concomitant]
  11. ATROVENT (IPRATROPIUM BROMIDE) [Concomitant]
  12. MULTIVITAMINS (MULTIVITAMINS) [Concomitant]
  13. LASIX (FUROSEMIDE) [Concomitant]

REACTIONS (1)
  - Neutropenia [None]
